FAERS Safety Report 6882850-5 (Version None)
Quarter: 2010Q3

REPORT INFORMATION
  Report Type: 
  Country: None (occurrence: None)
  Receive Date: 20100702
  Receipt Date: 20090605
  Transmission Date: 20110219
  Serious: Yes (Hospitalization, Other)
  Sender: FDA-Public Use
  Company Number: 2009223459

PATIENT
  Sex: Female

DRUGS (7)
  1. ZOLOFT [Suspect]
     Dates: start: 20030101
  2. WELLBUTRIN XL [Concomitant]
  3. CELEBREX [Concomitant]
  4. ACTONEL [Concomitant]
  5. NEXIUM [Concomitant]
  6. LIPITOR [Concomitant]
  7. XANAX [Concomitant]

REACTIONS (5)
  - ANXIETY [None]
  - SELF-INJURIOUS IDEATION [None]
  - SOCIAL AVOIDANT BEHAVIOUR [None]
  - SUICIDAL BEHAVIOUR [None]
  - SUICIDAL IDEATION [None]
